FAERS Safety Report 20674342 (Version 2)
Quarter: 2022Q2

REPORT INFORMATION
  Report Type: Spontaneous
  Country: BR (occurrence: BR)
  Receive Date: 20220405
  Receipt Date: 20220419
  Transmission Date: 20220721
  Serious: Yes (Hospitalization)
  Sender: FDA-Public Use
  Company Number: BR-BAXTER-2022BAX006089

PATIENT
  Age: 22 Year
  Sex: Female

DRUGS (2)
  1. SODIUM CHLORIDE [Suspect]
     Active Substance: SODIUM CHLORIDE
     Indication: Medication dilution
     Dosage: DOSAGE: 2 AMPOULES DILUTED IN 250 ML OF 0.9% SALINE
     Route: 042
     Dates: start: 20220203, end: 20220203
  2. IRON [Suspect]
     Active Substance: IRON
     Indication: Laboratory test abnormal
     Dosage: 2 AMPOULES DILUTED IN 250 ML OF 0.9% SALINE SOLUTION
     Route: 042
     Dates: start: 20220203, end: 20220203

REACTIONS (4)
  - Facial paralysis [Unknown]
  - Oedema peripheral [Unknown]
  - Drug hypersensitivity [Recovered/Resolved]
  - Hypotension [Unknown]

NARRATIVE: CASE EVENT DATE: 20220203
